FAERS Safety Report 4408036-1 (Version None)
Quarter: 2004Q3

REPORT INFORMATION
  Report Type: 
  Country: None (occurrence: None)
  Receive Date: 20040721
  Receipt Date: 20040630
  Transmission Date: 20050211
  Serious: Yes (Death, Hospitalization)
  Sender: FDA-Public Use
  Company Number: EWC031137046

PATIENT
  Age: 55 Year
  Sex: Female
  Weight: 90 kg

DRUGS (9)
  1. ZYPREXA [Suspect]
     Indication: BIPOLAR DISORDER
     Dosage: 30 MG/DAY
     Route: 048
     Dates: start: 20031016
  2. CISORDUINOL-ACUTARD           (ZUCLOPENTHIXOL ACETATE) [Concomitant]
  3. CITALOPRAM HYDROBROMIDE [Concomitant]
  4. PROPAVAN (PROPIOMAZINE MALEATE) [Concomitant]
  5. STESILID (DIAZEPAM) [Concomitant]
  6. NOZINAN (LEVOMEPROMAZINE) [Concomitant]
  7. THERALEN    (ALIMEMAZINE TARTRATE) [Concomitant]
  8. CLONAZEPAM [Concomitant]
  9. HERMINEVRIN     (CLOMETHIAZOLE EDISILATE) [Concomitant]

REACTIONS (6)
  - CARDIOMEGALY [None]
  - LOCALISED INFECTION [None]
  - MANIA [None]
  - PNEUMONIA [None]
  - SUDDEN CARDIAC DEATH [None]
  - UPPER RESPIRATORY TRACT INFECTION [None]
